FAERS Safety Report 13954317 (Version 1)
Quarter: 2017Q3

REPORT INFORMATION
  Report Type: Spontaneous
  Country: US (occurrence: US)
  Receive Date: 20170909
  Receipt Date: 20170909
  Transmission Date: 20171128
  Serious: Yes (Other)
  Sender: FDA-Public Use
  Company Number: None

PATIENT
  Sex: Female

DRUGS (1)
  1. NATURE-THROID [Suspect]
     Active Substance: THYROID, PORCINE
     Indication: THYROID DISORDER
     Route: 048
     Dates: start: 20170804

REACTIONS (4)
  - Lip swelling [None]
  - Pyrexia [None]
  - Angular cheilitis [None]
  - Lip dry [None]

NARRATIVE: CASE EVENT DATE: 20170808
